FAERS Safety Report 25665145 (Version 1)
Quarter: 2025Q3

REPORT INFORMATION
  Report Type: Spontaneous
  Country: US (occurrence: US)
  Receive Date: 20250811
  Receipt Date: 20250811
  Transmission Date: 20251020
  Serious: No
  Sender: ALEXION PHARMACEUTICALS
  Company Number: US-ASTRAZENECA-202506USA026600US

PATIENT
  Age: 57 Year
  Sex: Male

DRUGS (3)
  1. FASENRA [Suspect]
     Active Substance: BENRALIZUMAB
     Dosage: 30 MILLIGRAM, Q8W
     Dates: start: 20250624
  2. FASENRA [Suspect]
     Active Substance: BENRALIZUMAB
  3. DUPIXENT [Suspect]
     Active Substance: DUPILUMAB
     Route: 065

REACTIONS (9)
  - Eosinophil count increased [Unknown]
  - Nasal polyps [Unknown]
  - Headache [Unknown]
  - Myalgia [Unknown]
  - Oropharyngeal pain [Unknown]
  - Rhinorrhoea [Unknown]
  - Dysphonia [Unknown]
  - Mental disorder [Unknown]
  - Product use in unapproved indication [Unknown]
